FAERS Safety Report 17891391 (Version 2)
Quarter: 2020Q3

REPORT INFORMATION
  Report Type: Spontaneous
  Country: US (occurrence: US)
  Receive Date: 20200612
  Receipt Date: 20200729
  Transmission Date: 20201103
  Serious: No
  Sender: FDA-Public Use
  Company Number: US-PARATEK PHARMACEUTICALS, INC.-2020PTK00068

PATIENT
  Sex: Male

DRUGS (2)
  1. NUZYRA [Suspect]
     Active Substance: OMADACYCLINE
     Indication: OSTEOMYELITIS
  2. NUZYRA [Suspect]
     Active Substance: OMADACYCLINE
     Indication: SEPSIS
     Dosage: UNK
     Dates: start: 20200403, end: 20200501

REACTIONS (1)
  - Off label use [Recovered/Resolved]
